FAERS Safety Report 11201915 (Version 1)
Quarter: 2015Q2

REPORT INFORMATION
  Report Type: Report from Study
  Country: US (occurrence: US)
  Receive Date: 20150619
  Receipt Date: 20150619
  Transmission Date: 20150821
  Serious: Yes (Hospitalization)
  Sender: FDA-Public Use
  Company Number: US-BIOGENIDEC-2015BI081359

PATIENT
  Age: 58 Year
  Sex: Female

DRUGS (4)
  1. AVONEX [Suspect]
     Active Substance: INTERFERON BETA-1A
     Indication: MULTIPLE SCLEROSIS
     Route: 030
  2. BACLOFEN. [Concomitant]
     Active Substance: BACLOFEN
     Indication: PRODUCT USED FOR UNKNOWN INDICATION
  3. LISINOPRIL. [Concomitant]
     Active Substance: LISINOPRIL
     Indication: PRODUCT USED FOR UNKNOWN INDICATION
  4. CITALOPRAM [Concomitant]
     Active Substance: CITALOPRAM HYDROBROMIDE
     Indication: PRODUCT USED FOR UNKNOWN INDICATION

REACTIONS (11)
  - Labile hypertension [Unknown]
  - Hypertension [Unknown]
  - Neurosis [Unknown]
  - Dehydration [Unknown]
  - Hallucination [Unknown]
  - Insomnia [Recovered/Resolved]
  - Drug dose omission [Unknown]
  - Muscle spasms [Unknown]
  - Hypophagia [Recovered/Resolved]
  - Intentional product misuse [Unknown]
  - Confusional state [Unknown]
